FAERS Safety Report 7124692-1 (Version None)
Quarter: 2010Q4

REPORT INFORMATION
  Report Type: 
  Country: None (occurrence: None)
  Receive Date: 20101122
  Receipt Date: 20101122
  Transmission Date: 20110411
  Serious: Yes (Life-Threatening, Other)
  Sender: FDA-Public Use
  Company Number: None

PATIENT
  Sex: Female
  Weight: 110.6777 kg

DRUGS (1)
  1. MIRAPEX [Suspect]
     Indication: RESTLESS LEGS SYNDROME
     Dosage: 0.10 DAILY PO
     Route: 048
     Dates: start: 20050429, end: 20101119

REACTIONS (5)
  - COMPULSIVE SHOPPING [None]
  - FATIGUE [None]
  - GAMBLING [None]
  - HYPERPHAGIA [None]
  - SUICIDAL IDEATION [None]
